FAERS Safety Report 7737151-X (Version None)
Quarter: 2011Q3

REPORT INFORMATION
  Report Type: 
  Country: None (occurrence: None)
  Receive Date: 20110908
  Receipt Date: 20110808
  Transmission Date: 20111222
  Serious: No
  Sender: FDA-Public Use
  Company Number: US-BAYER-2011-072246

PATIENT
  Age: 23 Year
  Sex: Female
  Weight: 106.58 kg

DRUGS (2)
  1. ALEVE (CAPLET) [Suspect]
     Indication: DYSMENORRHOEA
     Dosage: BOTTLE COUNT 100S
     Route: 048
     Dates: start: 20110807
  2. PROZAC [Concomitant]

REACTIONS (3)
  - NAUSEA [None]
  - DYSMENORRHOEA [None]
  - ANXIETY [None]
